FAERS Safety Report 14798013 (Version 1)
Quarter: 2018Q2

REPORT INFORMATION
  Report Type: Spontaneous
  Country: US (occurrence: US)
  Receive Date: 20180424
  Receipt Date: 20180424
  Transmission Date: 20180711
  Serious: Yes (Hospitalization)
  Sender: FDA-Public Use
  Company Number: US-IBIGEN-2018.03882

PATIENT
  Age: 56 Year
  Sex: Male

DRUGS (6)
  1. CEFTRIAXONE. [Suspect]
     Active Substance: CEFTRIAXONE
  2. CEPHALEXIN. [Concomitant]
     Active Substance: CEPHALEXIN
  3. PIPERACILLIN, TAZOVBACTAM [Suspect]
     Active Substance: PIPERACILLIN SODIUM\TAZOBACTAM SODIUM
     Indication: MUCORMYCOSIS
  4. CIPROFLOXACIN. [Suspect]
     Active Substance: CIPROFLOXACIN
  5. METRONIDAZOLE. [Suspect]
     Active Substance: METRONIDAZOLE
  6. AMOXICILLIN, CLAVULANIC ACID [Suspect]
     Active Substance: AMOXICILLIN\CLAVULANIC ACID

REACTIONS (2)
  - Drug ineffective [Unknown]
  - Medication error [Unknown]
